FAERS Safety Report 26056580 (Version 1)
Quarter: 2025Q4

REPORT INFORMATION
  Report Type: Spontaneous
  Country: US (occurrence: US)
  Receive Date: 20251118
  Receipt Date: 20251118
  Transmission Date: 20260118
  Serious: No
  Sender: AMNEAL
  Company Number: US-AMNEAL PHARMACEUTICALS-2024-AMRX-04663

PATIENT
  Age: 33 Year

DRUGS (1)
  1. ISOTRETINOIN [Suspect]
     Active Substance: ISOTRETINOIN
     Indication: Product used for unknown indication
     Dosage: 30 MILLIGRAM, 2 /DAY
     Route: 065
     Dates: start: 20240715, end: 20241216

REACTIONS (2)
  - Chapped lips [Unknown]
  - Product use issue [Unknown]

NARRATIVE: CASE EVENT DATE: 20241216
